FAERS Safety Report 6336448-8 (Version None)
Quarter: 2009Q3

REPORT INFORMATION
  Report Type: 
  Country: None (occurrence: None)
  Receive Date: 20090901
  Receipt Date: 20090825
  Transmission Date: 20100115
  Serious: Yes (Other)
  Sender: FDA-Public Use
  Company Number: AR-AVENTIS-200919182GDDC

PATIENT
  Age: 78 Year
  Sex: Male

DRUGS (5)
  1. LANTUS [Suspect]
     Route: 058
     Dates: start: 20090101
  2. METFORMIN HCL [Concomitant]
     Route: 048
  3. SULFONAMIDES, UREA DERIVATIVES [Concomitant]
     Route: 048
  4. ORAL BLOOD GLUCOSE LOWERING DRUGS [Concomitant]
     Route: 048
  5. INSULINS AND ANALOGUES,FAST-ACTING [Concomitant]
     Route: 058

REACTIONS (3)
  - BOWEL MOVEMENT IRREGULARITY [None]
  - JAUNDICE [None]
  - PANCREATIC CARCINOMA [None]
